FAERS Safety Report 6802065-6 (Version None)
Quarter: 2010Q2

REPORT INFORMATION
  Report Type: 
  Country: None (occurrence: None)
  Receive Date: 20100629
  Receipt Date: 20070507
  Transmission Date: 20101027
  Serious: No
  Sender: FDA-Public Use
  Company Number: US-PFIZER INC-2007036285

PATIENT
  Sex: Female
  Weight: 63.636 kg

DRUGS (3)
  1. TIKOSYN [Suspect]
     Indication: ATRIAL FIBRILLATION
     Dates: start: 20070504
  2. TPN [Concomitant]
  3. CUMADIN [Concomitant]

REACTIONS (5)
  - CHILLS [None]
  - FATIGUE [None]
  - HEADACHE [None]
  - HYPERHIDROSIS [None]
  - SLEEP DISORDER [None]
